FAERS Safety Report 14600473 (Version 3)
Quarter: 2018Q2

REPORT INFORMATION
  Report Type: Spontaneous
  Country: US (occurrence: US)
  Receive Date: 20180305
  Receipt Date: 20180611
  Transmission Date: 20180711
  Serious: Yes (Other)
  Sender: FDA-Public Use
  Company Number: US-BAYER-2018-039814

PATIENT
  Age: 84 Year
  Sex: Female

DRUGS (9)
  1. DILANTIN [Concomitant]
     Active Substance: PHENYTOIN
  2. AMLODIPINE [Concomitant]
     Active Substance: AMLODIPINE BESYLATE
  3. COUMADIN [Concomitant]
     Active Substance: WARFARIN SODIUM
  4. MIRALAX [Suspect]
     Active Substance: POLYETHYLENE GLYCOL 3350
     Indication: GASTROINTESTINAL DISORDER
     Dosage: ONCE DAILY
     Route: 048
     Dates: start: 2014
  5. MIRALAX [Suspect]
     Active Substance: POLYETHYLENE GLYCOL 3350
     Indication: GASTROINTESTINAL DISORDER
     Dosage: UNK
  6. FENOBARBITAL [Suspect]
     Active Substance: PHENOBARBITAL
  7. MIRALAX [Suspect]
     Active Substance: POLYETHYLENE GLYCOL 3350
     Indication: GASTROINTESTINAL DISORDER
     Dosage: UNK
  8. SOTALOL. [Concomitant]
     Active Substance: SOTALOL
  9. PHENOBARBITAL. [Concomitant]
     Active Substance: PHENOBARBITAL

REACTIONS (6)
  - Nephropathy [Not Recovered/Not Resolved]
  - Incorrect drug administration duration [Unknown]
  - Nausea [Unknown]
  - Product prescribing issue [Unknown]
  - Poor quality drug administered [Unknown]
  - Drug ineffective [Unknown]

NARRATIVE: CASE EVENT DATE: 2014
